FAERS Safety Report 23376377 (Version 3)
Quarter: 2024Q3

REPORT INFORMATION
  Report Type: Report from Study
  Country: CA (occurrence: CA)
  Receive Date: 20240108
  Receipt Date: 20240718
  Transmission Date: 20241017
  Serious: Yes (Hospitalization, Other)
  Sender: TAIHO ONCOLOGY INC
  Company Number: CA-TAIHOP-2023-010682

PATIENT
  Age: 61 Year
  Sex: Male

DRUGS (1)
  1. LONSURF [Suspect]
     Active Substance: TIPIRACIL HYDROCHLORIDE\TRIFLURIDINE
     Indication: Colorectal cancer metastatic
     Dosage: CYCLE UNKNOWN
     Route: 048
     Dates: start: 20231204

REACTIONS (6)
  - Back pain [Unknown]
  - White blood cell count decreased [Unknown]
  - Nausea [Unknown]
  - Rash [Unknown]
  - Acne [Not Recovered/Not Resolved]
  - Disease progression [Unknown]
